FAERS Safety Report 14206365 (Version 3)
Quarter: 2017Q4

REPORT INFORMATION
  Report Type: Spontaneous
  Country: JP (occurrence: JP)
  Receive Date: 20171120
  Receipt Date: 20171208
  Transmission Date: 20180321
  Serious: Yes (Other)
  Sender: FDA-Public Use
  Company Number: JP-009507513-1711JPN008162

PATIENT
  Age: 1 Year
  Sex: Female

DRUGS (5)
  1. MITOXANTRONE HYDROCHLORIDE. [Suspect]
     Active Substance: MITOXANTRONE HYDROCHLORIDE
     Dosage: UNK
     Route: 042
  2. DEXAMETHASONE. [Suspect]
     Active Substance: DEXAMETHASONE
     Dosage: UNK
     Route: 048
  3. ASPARAGINASE [Suspect]
     Active Substance: ASPARAGINASE
     Dosage: UNK
  4. VORINOSTAT [Suspect]
     Active Substance: VORINOSTAT
     Dosage: UNK
     Route: 048
  5. BORTEZOMIB [Suspect]
     Active Substance: BORTEZOMIB
     Dosage: UNK

REACTIONS (2)
  - Sepsis [Unknown]
  - Febrile neutropenia [Unknown]
